FAERS Safety Report 23678074 (Version 3)
Quarter: 2024Q2

REPORT INFORMATION
  Report Type: Spontaneous
  Country: US (occurrence: US)
  Receive Date: 20240327
  Receipt Date: 20240503
  Transmission Date: 20240715
  Serious: No
  Sender: FDA-Public Use
  Company Number: US-PFIZER INC-202400072030

PATIENT
  Age: 69 Year
  Sex: Female

DRUGS (2)
  1. XELJANZ [Suspect]
     Active Substance: TOFACITINIB CITRATE
     Indication: Neutropenia
     Dosage: 5 MG PO BID (PER ORAL TWICE DAILY)
     Route: 048
     Dates: start: 20240223
  2. XELJANZ [Suspect]
     Active Substance: TOFACITINIB CITRATE
     Indication: Large granular lymphocytosis

REACTIONS (6)
  - Off label use [Unknown]
  - Pyrexia [Recovered/Resolved]
  - Hyperhidrosis [Recovered/Resolved]
  - Chills [Recovered/Resolved]
  - Hypertension [Recovered/Resolved]
  - Aphthous ulcer [Recovered/Resolved]

NARRATIVE: CASE EVENT DATE: 20240226
